FAERS Safety Report 5127937-2 (Version None)
Quarter: 2006Q4

REPORT INFORMATION
  Report Type: 
  Country: None (occurrence: None)
  Receive Date: 20061013
  Receipt Date: 20061013
  Transmission Date: 20070319
  Serious: Yes (Life-Threatening)
  Sender: FDA-Public Use
  Company Number: None

PATIENT
  Sex: Female

DRUGS (1)
  1. ENBREL [Suspect]
     Indication: INFLAMMATION
     Dosage: 25 MG  2 INJ WK
     Dates: start: 20041005

REACTIONS (1)
  - BREAST CANCER [None]
